FAERS Safety Report 21157556 (Version 1)
Quarter: 2022Q3

REPORT INFORMATION
  Report Type: Report from Study
  Country: JP (occurrence: JP)
  Receive Date: 20220801
  Receipt Date: 20220801
  Transmission Date: 20221027
  Serious: No
  Sender: FDA-Public Use
  Company Number: JP-MSD-LAG010686-001

PATIENT
  Age: 38 Year
  Sex: Female

DRUGS (9)
  1. MOLNUPIRAVIR [Suspect]
     Active Substance: MOLNUPIRAVIR
     Indication: COVID-19 treatment
     Dosage: 800 MILLIGRAM, QD
     Route: 048
     Dates: start: 20220218, end: 20220218
  2. MOLNUPIRAVIR [Suspect]
     Active Substance: MOLNUPIRAVIR
     Dosage: 800 MILLIGRAM, BID
     Route: 048
     Dates: start: 20220219, end: 20220222
  3. MOLNUPIRAVIR [Suspect]
     Active Substance: MOLNUPIRAVIR
     Dosage: 800 MILLIGRAM, QD
     Route: 048
     Dates: start: 20220223, end: 20220223
  4. DEXTROMETHORPHAN HYDROBROMIDE [Concomitant]
     Active Substance: DEXTROMETHORPHAN HYDROBROMIDE
     Indication: COVID-19 treatment
     Dosage: UNK
     Route: 065
     Dates: start: 202202, end: 202202
  5. HOKUNALIN [TULOBUTEROL HYDROCHLORIDE] [Concomitant]
     Indication: COVID-19 treatment
     Dosage: UNK
     Route: 065
     Dates: start: 202202, end: 202202
  6. TRANEXAMIC ACID [Concomitant]
     Active Substance: TRANEXAMIC ACID
     Indication: COVID-19 treatment
     Dosage: UNK
     Route: 065
     Dates: start: 202202, end: 202202
  7. BROMHEXINE HYDROCHLORIDE [Concomitant]
     Active Substance: BROMHEXINE HYDROCHLORIDE
     Indication: COVID-19 treatment
     Dosage: UNK
     Route: 065
     Dates: start: 202202, end: 202202
  8. ASVERIN (TIPEPIDINE HIBENZATE) [Concomitant]
     Active Substance: TIPEPIDINE HIBENZATE
     Indication: COVID-19 treatment
     Dosage: UNK
     Route: 065
     Dates: start: 202202, end: 202202
  9. CALONAL [Concomitant]
     Active Substance: ACETAMINOPHEN
     Indication: COVID-19 treatment
     Dosage: UNK
     Route: 065
     Dates: start: 202202, end: 202202

REACTIONS (2)
  - Product use issue [Unknown]
  - No adverse event [Unknown]

NARRATIVE: CASE EVENT DATE: 20220101
